FAERS Safety Report 5045242-X (Version None)
Quarter: 2006Q3

REPORT INFORMATION
  Report Type: 
  Country: None (occurrence: None)
  Receive Date: 20060707
  Receipt Date: 20060629
  Transmission Date: 20061208
  Serious: Yes (Other)
  Sender: FDA-Public Use
  Company Number: 2006PK01446

PATIENT
  Age: 34 Year
  Sex: Male

DRUGS (2)
  1. SEROQUEL [Suspect]
     Indication: ACUTE PSYCHOSIS
     Route: 048
     Dates: start: 20060511, end: 20060519
  2. RISPERDAL [Suspect]
     Indication: ACUTE PSYCHOSIS
     Route: 048
     Dates: start: 20060301, end: 20060510

REACTIONS (2)
  - LEUKOPENIA [None]
  - THROMBOCYTOPENIA [None]
